FAERS Safety Report 15515620 (Version 1)
Quarter: 2018Q4

REPORT INFORMATION
  Report Type: Report from Study
  Country: None (occurrence: CA)
  Receive Date: 20181017
  Receipt Date: 20181017
  Transmission Date: 20190205
  Serious: Yes (Hospitalization, Other)
  Sender: FDA-Public Use
  Company Number: CA-ABBVIE-18K-028-2249146-00

PATIENT
  Age: 69 Year
  Sex: Female

DRUGS (5)
  1. HUMIRA [Suspect]
     Active Substance: ADALIMUMAB
     Route: 058
     Dates: start: 201808, end: 201808
  2. HUMIRA [Suspect]
     Active Substance: ADALIMUMAB
     Indication: CROHN^S DISEASE
     Route: 058
     Dates: start: 20171110, end: 20180905
  3. HUMIRA [Suspect]
     Active Substance: ADALIMUMAB
     Route: 058
     Dates: start: 20180822, end: 20180822
  4. HUMIRA [Suspect]
     Active Substance: ADALIMUMAB
     Route: 058
     Dates: start: 201809
  5. PREDNISONE. [Concomitant]
     Active Substance: PREDNISONE
     Indication: CROHN^S DISEASE
     Route: 048
     Dates: start: 201708

REACTIONS (13)
  - Food intolerance [Not Recovered/Not Resolved]
  - Haemorrhoids [Unknown]
  - Colitis [Unknown]
  - Ovarian cyst [Recovered/Resolved]
  - Duodenal stenosis [Recovering/Resolving]
  - Frequent bowel movements [Not Recovered/Not Resolved]
  - Ileostomy [Not Recovered/Not Resolved]
  - Dehydration [Unknown]
  - Infection [Unknown]
  - Diarrhoea haemorrhagic [Unknown]
  - Drug ineffective [Not Recovered/Not Resolved]
  - Large intestinal stenosis [Recovering/Resolving]
  - Ulcer [Unknown]

NARRATIVE: CASE EVENT DATE: 2018
